FAERS Safety Report 4357764-5 (Version None)
Quarter: 2004Q2

REPORT INFORMATION
  Report Type: 
  Country: None (occurrence: None)
  Receive Date: 20040513
  Receipt Date: 20030528
  Transmission Date: 20050107
  Serious: Yes (Life-Threatening, Hospitalization)
  Sender: FDA-Public Use
  Company Number: BE-AMGEN-US039551

PATIENT
  Sex: Female

DRUGS (14)
  1. ETANERCEPT [Suspect]
     Indication: RHEUMATOID ARTHRITIS
     Route: 058
     Dates: start: 19980608, end: 20030510
  2. ETANERCEPT [Suspect]
     Route: 058
     Dates: start: 20030530, end: 20030624
  3. ACETAMINOPHEN [Concomitant]
     Dates: start: 20030417
  4. CALCIUM [Concomitant]
     Dates: start: 19960215
  5. ASPIRIN [Concomitant]
     Dates: start: 19950727
  6. PREMARIN [Concomitant]
     Dates: start: 20020201
  7. MYOLASTAN [Concomitant]
     Dates: start: 20030324, end: 20030419
  8. TRAMADOL HCL [Concomitant]
     Dates: start: 20021010
  9. DUPHASTON [Concomitant]
  10. METHYLPREDNISOLONE [Concomitant]
  11. BEFACT [Concomitant]
  12. ISRADIPINE [Concomitant]
     Dates: start: 20020328
  13. TRIAMCINOLONE [Concomitant]
     Dates: start: 20020417, end: 20030414
  14. PIROXICAM [Concomitant]
     Dates: start: 20011016

REACTIONS (2)
  - BREAST CANCER [None]
  - CYST REMOVAL [None]
